FAERS Safety Report 5688592-6 (Version None)
Quarter: 2008Q1

REPORT INFORMATION
  Report Type: 
  Country: None (occurrence: None)
  Receive Date: 20080331
  Receipt Date: 20080319
  Transmission Date: 20080703
  Serious: Yes (Death, Other)
  Sender: FDA-Public Use
  Company Number: PHBS2008AT03539

PATIENT
  Age: 52 Year
  Sex: Female

DRUGS (4)
  1. CYCLOSPORINE [Suspect]
     Indication: LUNG TRANSPLANT
     Dosage: UNK, UNK
     Route: 065
     Dates: start: 20060401
  2. MYCOPHENOLATE MOFETIL [Suspect]
     Indication: LUNG TRANSPLANT
     Dosage: UNK, UNK
     Route: 065
     Dates: start: 20060401
  3. PREDNISOLONE [Suspect]
     Indication: LUNG TRANSPLANT
     Dosage: UNK, UNK
     Route: 065
     Dates: start: 20060401
  4. SIMULECT [Concomitant]
     Indication: LUNG TRANSPLANT
     Dosage: UNK, UNK
     Route: 065
     Dates: start: 20060401

REACTIONS (2)
  - LYMPHOPROLIFERATIVE DISORDER [None]
  - ZYGOMYCOSIS [None]
